FAERS Safety Report 5064762-5 (Version None)
Quarter: 2006Q3

REPORT INFORMATION
  Report Type: 
  Country: None (occurrence: None)
  Receive Date: 20060725
  Receipt Date: 20060710
  Transmission Date: 20061208
  Serious: Yes (Other)
  Sender: FDA-Public Use
  Company Number: 2006S1006328

PATIENT
  Age: 54 Year
  Sex: Male

DRUGS (3)
  1. FENTANYL TRANSDERMAL SYSTEM [Suspect]
     Indication: FIBROMYALGIA
     Dosage: 75 UG/HR;QOD
     Dates: start: 20050101
  2. HYDROCODONE [Concomitant]
  3. MONOPRIL [Concomitant]

REACTIONS (3)
  - DRUG INEFFECTIVE [None]
  - NEPHROLITHIASIS [None]
  - THERAPEUTIC RESPONSE UNEXPECTED WITH DRUG SUBSTITUTION [None]
